FAERS Safety Report 7581795-5 (Version None)
Quarter: 2011Q2

REPORT INFORMATION
  Report Type: 
  Country: None (occurrence: None)
  Receive Date: 20110629
  Receipt Date: 20110609
  Transmission Date: 20111010
  Serious: Yes (Hospitalization)
  Sender: FDA-Public Use
  Company Number: FR-ASTRAZENECA-2011SE35611

PATIENT
  Age: 53 Year
  Sex: Male

DRUGS (5)
  1. LEVOFLOXACIN [Suspect]
     Route: 048
     Dates: start: 20110416, end: 20110507
  2. NEXIUM [Suspect]
     Route: 048
     Dates: start: 20110204, end: 20110508
  3. ALFUZOSIN HCL [Suspect]
     Route: 048
     Dates: start: 20110311, end: 20110508
  4. LOVENOX [Suspect]
     Route: 058
     Dates: start: 20110204, end: 20110507
  5. FLAGYL [Suspect]
     Route: 048
     Dates: start: 20110404, end: 20110507

REACTIONS (2)
  - CONDITION AGGRAVATED [None]
  - NEUTROPENIA [None]
